FAERS Safety Report 7300479-1 (Version None)
Quarter: 2011Q1

REPORT INFORMATION
  Report Type: 
  Country: None (occurrence: None)
  Receive Date: 20110217
  Receipt Date: 20101118
  Transmission Date: 20110831
  Serious: No
  Sender: FDA-Public Use
  Company Number: 2009BI007413

PATIENT
  Age: 60 Year
  Sex: Female

DRUGS (2)
  1. TYSABRI [Suspect]
     Indication: MULTIPLE SCLEROSIS
     Route: 042
     Dates: start: 20080717, end: 20090309
  2. TYSABRI [Suspect]
     Route: 042
     Dates: start: 20100305

REACTIONS (2)
  - MULTIPLE SCLEROSIS [None]
  - DRUG INEFFECTIVE [None]
